FAERS Safety Report 10232890 (Version 1)
Quarter: 2014Q2

REPORT INFORMATION
  Report Type: Spontaneous
  Country: US (occurrence: None)
  Receive Date: 20140611
  Receipt Date: 20140611
  Transmission Date: 20141212
  Serious: Yes (Death)
  Sender: FDA-Public Use
  Company Number: None

PATIENT
  Age: 68 Year
  Sex: Male
  Weight: 108.86 kg

DRUGS (1)
  1. SUPREP [Suspect]
     Indication: COLONOSCOPY
     Dosage: 2 DOSES ?2 DOSES FOR PREP ?TAKEN BY MOUTH
     Route: 048
     Dates: start: 20140512, end: 20140513

REACTIONS (1)
  - Cardiac arrest [None]
